FAERS Safety Report 18637551 (Version 3)
Quarter: 2021Q1

REPORT INFORMATION
  Report Type: Spontaneous
  Country: GB (occurrence: GB)
  Receive Date: 20201219
  Receipt Date: 20210215
  Transmission Date: 20210419
  Serious: Yes (Other)
  Sender: FDA-Public Use
  Company Number: GB-AMGEN-GBRSP2020204557

PATIENT
  Age: 42 Year
  Sex: Male

DRUGS (1)
  1. ARANESP [Suspect]
     Active Substance: DARBEPOETIN ALFA
     Indication: NEPHROGENIC ANAEMIA
     Dosage: 150 MICROGRAM, QWK
     Route: 042
     Dates: start: 20181115

REACTIONS (1)
  - Refractory cytopenia with unilineage dysplasia [Not Recovered/Not Resolved]

NARRATIVE: CASE EVENT DATE: 2020
